FAERS Safety Report 7414157-1 (Version None)
Quarter: 2011Q2

REPORT INFORMATION
  Report Type: 
  Country: None (occurrence: None)
  Receive Date: 20110411
  Receipt Date: 20110411
  Transmission Date: 20111010
  Serious: No
  Sender: FDA-Public Use
  Company Number: None

PATIENT
  Age: 61 Year
  Sex: Male
  Weight: 71.6683 kg

DRUGS (3)
  1. ALPRAZOLAM [Suspect]
     Indication: ANXIETY
     Dosage: 1 TABLET/ 3 TIMES DAILY EVERY DAY
     Dates: start: 20110303, end: 20110307
  2. ALPRAZOLAM [Suspect]
     Indication: PANIC DISORDER
     Dosage: 1 TABLET/ 3 TIMES DAILY EVERY DAY
     Dates: start: 20110303, end: 20110307
  3. ALPRAZOLAM [Suspect]
     Indication: DEPRESSION
     Dosage: 1 TABLET/ 3 TIMES DAILY EVERY DAY
     Dates: start: 20110303, end: 20110307

REACTIONS (12)
  - FATIGUE [None]
  - MUSCULOSKELETAL DISCOMFORT [None]
  - PRODUCT TASTE ABNORMAL [None]
  - NIGHTMARE [None]
  - HOT FLUSH [None]
  - THINKING ABNORMAL [None]
  - MUSCLE SPASMS [None]
  - CONSTIPATION [None]
  - MIGRAINE [None]
  - RESTLESSNESS [None]
  - MUSCLE TWITCHING [None]
  - DRY MOUTH [None]
